FAERS Safety Report 8816865 (Version 1)
Quarter: 2012Q4

REPORT INFORMATION
  Report Type: Spontaneous
  Country: US (occurrence: None)
  Receive Date: 20121002
  Receipt Date: 20121002
  Transmission Date: 20130627
  Serious: Yes (Other)
  Sender: FDA-Public Use
  Company Number: None

PATIENT
  Age: 72 Year
  Sex: Female
  Weight: 99.1 kg

DRUGS (2)
  1. LISINOPRIL [Suspect]
     Route: 048
     Dates: start: 20120923, end: 20120926
  2. LISINOPRIL [Suspect]
     Route: 048
     Dates: start: 20120923, end: 20120926

REACTIONS (1)
  - Angioedema [None]
